FAERS Safety Report 26134864 (Version 1)
Quarter: 2025Q4

REPORT INFORMATION
  Report Type: Spontaneous
  Country: US (occurrence: US)
  Receive Date: 20251209
  Receipt Date: 20251209
  Transmission Date: 20260118
  Serious: Yes (Hospitalization)
  Sender: MYLAN
  Company Number: US-MYLANLABS-2025M1103658

PATIENT
  Age: 34 Year
  Sex: Male

DRUGS (12)
  1. VALPROATE [Suspect]
     Active Substance: VALPROIC ACID
     Indication: Schizophrenia
     Dosage: UNK, UNKNOWN AMOUNT
  2. VALPROATE [Suspect]
     Active Substance: VALPROIC ACID
     Dosage: UNK, UNKNOWN AMOUNT
     Route: 065
  3. VALPROATE [Suspect]
     Active Substance: VALPROIC ACID
     Dosage: UNK, UNKNOWN AMOUNT
     Route: 065
  4. VALPROATE [Suspect]
     Active Substance: VALPROIC ACID
     Dosage: UNK, UNKNOWN AMOUNT
  5. FLUOXETINE [Concomitant]
     Active Substance: FLUOXETINE HYDROCHLORIDE
     Indication: Schizophrenia
     Dosage: UNK
  6. FLUOXETINE [Concomitant]
     Active Substance: FLUOXETINE HYDROCHLORIDE
     Dosage: UNK
     Route: 065
  7. FLUOXETINE [Concomitant]
     Active Substance: FLUOXETINE HYDROCHLORIDE
     Dosage: UNK
     Route: 065
  8. FLUOXETINE [Concomitant]
     Active Substance: FLUOXETINE HYDROCHLORIDE
     Dosage: UNK
  9. QUETIAPINE [Concomitant]
     Active Substance: QUETIAPINE
     Indication: Schizophrenia
     Dosage: UNK
  10. QUETIAPINE [Concomitant]
     Active Substance: QUETIAPINE
     Dosage: UNK
     Route: 065
  11. QUETIAPINE [Concomitant]
     Active Substance: QUETIAPINE
     Dosage: UNK
     Route: 065
  12. QUETIAPINE [Concomitant]
     Active Substance: QUETIAPINE
     Dosage: UNK

REACTIONS (9)
  - Suicide attempt [Recovered/Resolved]
  - Mental disorder [Recovered/Resolved]
  - Somnolence [Recovered/Resolved]
  - Gait disturbance [Recovered/Resolved]
  - Vomiting [Recovered/Resolved]
  - Diarrhoea [Recovered/Resolved]
  - Confusional state [Recovered/Resolved]
  - Intentional overdose [Recovered/Resolved]
  - Product use in unapproved indication [Unknown]
